FAERS Safety Report 24067886 (Version 2)
Quarter: 2024Q3

REPORT INFORMATION
  Report Type: Spontaneous
  Country: HU (occurrence: HU)
  Receive Date: 20240710
  Receipt Date: 20240729
  Transmission Date: 20241016
  Serious: Yes (Other)
  Sender: TEVA
  Company Number: HU-TEVA-VS-3217036

PATIENT
  Age: 63 Year
  Sex: Female

DRUGS (4)
  1. METHYLPREDNISOLONE [Suspect]
     Active Substance: METHYLPREDNISOLONE
     Indication: Pemphigus
     Route: 065
  2. AZATHIOPRINE [Suspect]
     Active Substance: AZATHIOPRINE
     Indication: Pemphigus
     Dosage: GRADUALLY INCREASED FROM  0.6 TO 2.5 MG/KG/DAY
     Route: 065
  3. AZATHIOPRINE [Suspect]
     Active Substance: AZATHIOPRINE
     Indication: Pemphigus
     Route: 065
  4. RITUXIMAB [Suspect]
     Active Substance: RITUXIMAB
     Indication: Pemphigus
     Route: 065

REACTIONS (2)
  - COVID-19 [Recovered/Resolved]
  - Pulmonary embolism [Recovered/Resolved]
